FAERS Safety Report 22668704 (Version 6)
Quarter: 2025Q1

REPORT INFORMATION
  Report Type: Spontaneous
  Country: CA (occurrence: CA)
  Receive Date: 20230704
  Receipt Date: 20250108
  Transmission Date: 20250408
  Serious: Yes (Other)
  Sender: PFIZER
  Company Number: CA-PFIZER INC-202300139453

PATIENT
  Age: 78 Year
  Sex: Female

DRUGS (6)
  1. ABRILADA [Suspect]
     Active Substance: ADALIMUMAB-AFZB
     Indication: Rheumatoid arthritis
     Route: 058
     Dates: start: 20221229
  2. HYDROXYCHLOROQUINE [Concomitant]
     Active Substance: HYDROXYCHLOROQUINE
  3. MORPHINE [Concomitant]
     Active Substance: MORPHINE
  4. PREDNISONE [Concomitant]
     Active Substance: PREDNISONE
  5. RAMIPRIL [Concomitant]
     Active Substance: RAMIPRIL
  6. WARFARIN [Concomitant]
     Active Substance: WARFARIN

REACTIONS (5)
  - Shoulder operation [Unknown]
  - Hip deformity [Recovered/Resolved]
  - Gait disturbance [Unknown]
  - Therapeutic product effect incomplete [Recovered/Resolved]
  - Condition aggravated [Unknown]

NARRATIVE: CASE EVENT DATE: 20230622
